FAERS Safety Report 23653152 (Version 1)
Quarter: 2024Q1

REPORT INFORMATION
  Report Type: Report from Study
  Country: US (occurrence: US)
  Receive Date: 20240320
  Receipt Date: 20240320
  Transmission Date: 20240410
  Serious: No
  Sender: FDA-Public Use
  Company Number: US-E2BLSMVVAL-CLI/USA/24/0004121

PATIENT
  Age: 5 Year
  Sex: Female
  Weight: 18.19 kg

DRUGS (1)
  1. SAPROPTERIN DIHYDROCHLORIDE [Suspect]
     Active Substance: SAPROPTERIN DIHYDROCHLORIDE
     Indication: Phenylketonuria
     Dosage: DISSOLVE FOUR 100 MG POWDER PACKETS IN 4 TO 8 OUNCES OF WATER OR APPLE JUICE
     Route: 048

REACTIONS (2)
  - Extra dose administered [Unknown]
  - Product dose omission issue [Unknown]
